FAERS Safety Report 25417922 (Version 1)
Quarter: 2025Q2

REPORT INFORMATION
  Report Type: Spontaneous
  Country: FR (occurrence: FR)
  Receive Date: 20250610
  Receipt Date: 20250610
  Transmission Date: 20250716
  Serious: Yes (Life-Threatening, Hospitalization, Other)
  Sender: PFIZER
  Company Number: FR-PFIZER INC-PV202500065413

PATIENT
  Age: 50 Year
  Sex: Female
  Weight: 87 kg

DRUGS (5)
  1. VOXELOTOR [Suspect]
     Active Substance: VOXELOTOR
     Indication: Sickle cell disease
     Dosage: 1500 MG, DAILY
     Dates: start: 20230919
  2. HYDROCHLOROTHIAZIDE [Concomitant]
     Active Substance: HYDROCHLOROTHIAZIDE
  3. ASPIRIN [Concomitant]
     Active Substance: ASPIRIN
  4. RAMIPRIL [Concomitant]
     Active Substance: RAMIPRIL
  5. FOLIC ACID [Concomitant]
     Active Substance: FOLIC ACID

REACTIONS (1)
  - Pulmonary embolism [Recovering/Resolving]

NARRATIVE: CASE EVENT DATE: 20231201
